FAERS Safety Report 7246940-X (Version None)
Quarter: 2011Q1

REPORT INFORMATION
  Report Type: 
  Country: None (occurrence: None)
  Receive Date: 20110127
  Receipt Date: 20110119
  Transmission Date: 20110831
  Serious: Yes (Other)
  Sender: FDA-Public Use
  Company Number: US-SANOFI-AVENTIS-2011SA004450

PATIENT
  Age: 72 Year
  Sex: Female
  Weight: 82 kg

DRUGS (3)
  1. ENOXAPARIN SODIUM [Suspect]
     Route: 065
  2. PRASUGREL [Suspect]
     Route: 065
  3. ACETYLSALICYLIC ACID SRT [Suspect]
     Route: 065

REACTIONS (2)
  - CARDIOGENIC SHOCK [None]
  - VASCULAR PSEUDOANEURYSM [None]
